FAERS Safety Report 9472623 (Version 1)
Quarter: 2013Q3

REPORT INFORMATION
  Report Type: Spontaneous
  Country: US (occurrence: None)
  Receive Date: 20130821
  Receipt Date: 20130821
  Transmission Date: 20140515
  Serious: Yes (Other)
  Sender: FDA-Public Use
  Company Number: None

PATIENT
  Age: 58 Year
  Sex: Female

DRUGS (1)
  1. L-THYROXINE [Suspect]
     Indication: HYPOTHYROIDISM
     Dosage: TAKE 1 TABLET DAILY
     Dates: start: 20130731, end: 20130817

REACTIONS (2)
  - Palpitations [None]
  - Product quality issue [None]
